FAERS Safety Report 20702198 (Version 4)
Quarter: 2022Q4

REPORT INFORMATION
  Report Type: Report from Study
  Country: AU (occurrence: AU)
  Receive Date: 20220412
  Receipt Date: 20221129
  Transmission Date: 20230112
  Serious: Yes (Other)
  Sender: FDA-Public Use
  Company Number: AU-ALLERGAN-2210710US

PATIENT

DRUGS (1)
  1. ACITRETIN [Suspect]
     Active Substance: ACITRETIN
     Indication: Prophylactic chemotherapy
     Dosage: 10 MILLIGRAM DAILY;
     Route: 065

REACTIONS (2)
  - Hallucination, visual [Unknown]
  - Off label use [Unknown]
